FAERS Safety Report 4280432-5 (Version None)
Quarter: 2004Q1

REPORT INFORMATION
  Report Type: 
  Country: None (occurrence: None)
  Receive Date: 20040126
  Receipt Date: 20040116
  Transmission Date: 20041129
  Serious: Yes (Other)
  Sender: FDA-Public Use
  Company Number: K200400066

PATIENT
  Age: 65 Year
  Sex: Female
  Weight: 39 kg

DRUGS (3)
  1. LEVOXYL [Suspect]
     Indication: HYPOTHYROIDISM
     Dosage: 25 MCG, QD, ORAL
     Route: 048
     Dates: start: 20040115, end: 20040116
  2. ATIVAN [Concomitant]
  3. AMBIEN [Concomitant]

REACTIONS (14)
  - ABDOMINAL PAIN [None]
  - ARRHYTHMIA [None]
  - DIARRHOEA [None]
  - DRY MOUTH [None]
  - DYSGEUSIA [None]
  - DYSPNOEA [None]
  - HEADACHE [None]
  - HYPERHIDROSIS [None]
  - NAUSEA [None]
  - RASH [None]
  - THROAT TIGHTNESS [None]
  - THYROID FUNCTION TEST ABNORMAL [None]
  - URTICARIA [None]
  - WEIGHT DECREASED [None]
